FAERS Safety Report 23287310 (Version 1)
Quarter: 2023Q4

REPORT INFORMATION
  Report Type: Spontaneous
  Country: US (occurrence: None)
  Receive Date: 20231210
  Receipt Date: 20231210
  Transmission Date: 20240110
  Serious: Yes (Other)
  Sender: FDA-Public Use
  Company Number: None

PATIENT
  Age: 32 Year
  Sex: Male
  Weight: 99 kg

DRUGS (7)
  1. PAROXETINE [Suspect]
     Active Substance: PAROXETINE
     Dosage: OTHER QUANTITY : 1 TABLET(S);?FREQUENCY : DAILY;?
     Route: 048
     Dates: start: 20220525, end: 20221130
  2. ATOMOXETINE [Concomitant]
  3. ATORVASTATIN [Concomitant]
  4. GABAPENTIN [Concomitant]
  5. ANTIHISTAMINES NOS [Concomitant]
     Active Substance: ANTIHISTAMINES NOS
  6. Azelastine nasal spray [Concomitant]
  7. FISH OIL [Concomitant]
     Active Substance: FISH OIL

REACTIONS (6)
  - Agitation [None]
  - Abnormal behaviour [None]
  - Dissociation [None]
  - Derealisation [None]
  - Gambling [None]
  - Obsessive-compulsive disorder [None]

NARRATIVE: CASE EVENT DATE: 20231130
